FAERS Safety Report 18013633 (Version 1)
Quarter: 2020Q3

REPORT INFORMATION
  Report Type: Spontaneous
  Country: US (occurrence: US)
  Receive Date: 20200711
  Receipt Date: 20200711
  Transmission Date: 20201103
  Serious: Yes (Disabling)
  Sender: FDA-Public Use
  Company Number: None

PATIENT
  Age: 76 Year
  Sex: Male
  Weight: 94.5 kg

DRUGS (7)
  1. METFORMIN [Concomitant]
     Active Substance: METFORMIN HYDROCHLORIDE
  2. TUMERIC [Concomitant]
     Active Substance: HERBALS\TURMERIC
  3. INVOKANA [Suspect]
     Active Substance: CANAGLIFLOZIN
  4. COENZYME Q10 [Concomitant]
     Active Substance: DIETARY SUPPLEMENT\UBIDECARENONE
  5. JARDIANCE [Suspect]
     Active Substance: EMPAGLIFLOZIN
  6. JANUVIA [Concomitant]
     Active Substance: SITAGLIPTIN PHOSPHATE
  7. FARXIGA [Suspect]
     Active Substance: DAPAGLIFLOZIN PROPANEDIOL
     Indication: TYPE 2 DIABETES MELLITUS
     Dosage: ?          QUANTITY:1 TABLET(S);??
     Route: 048
     Dates: start: 20200505, end: 20200509

REACTIONS (2)
  - Peripheral swelling [None]
  - Pain [None]

NARRATIVE: CASE EVENT DATE: 20200505
